FAERS Safety Report 25143136 (Version 2)
Quarter: 2025Q2

REPORT INFORMATION
  Report Type: Spontaneous
  Country: US (occurrence: US)
  Receive Date: 20250401
  Receipt Date: 20250624
  Transmission Date: 20250717
  Serious: No
  Sender: BIOGEN
  Company Number: US-BIOGEN-2025BI01304852

PATIENT
  Sex: Female

DRUGS (1)
  1. ZURZUVAE [Suspect]
     Active Substance: ZURANOLONE
     Indication: Product used for unknown indication
     Route: 050
     Dates: end: 2025

REACTIONS (2)
  - Amnesia [Unknown]
  - Anxiety [Not Recovered/Not Resolved]
